FAERS Safety Report 4916547-5 (Version None)
Quarter: 2006Q1

REPORT INFORMATION
  Report Type: 
  Country: None (occurrence: None)
  Receive Date: 20060220
  Receipt Date: 20060110
  Transmission Date: 20060701
  Serious: Yes (Other)
  Sender: FDA-Public Use
  Company Number: PHNU2006DE00513

PATIENT
  Age: 60 Year
  Sex: Female

DRUGS (15)
  1. CERTICAN [Suspect]
     Indication: HEART TRANSPLANT
     Dosage: 2MG/DAY
     Dates: start: 20050124
  2. SANDIMMUNE [Suspect]
     Indication: HEART TRANSPLANT
     Dates: end: 20030101
  3. CELLCEPT [Concomitant]
     Indication: HEART TRANSPLANT
  4. PREDNISOLONE [Suspect]
     Indication: HEART TRANSPLANT
  5. ATACAND [Concomitant]
  6. DILTIAZEM HCL [Concomitant]
  7. TORSEMIDE [Concomitant]
  8. DISALUNIL [Concomitant]
  9. PRAVASTATIN [Concomitant]
  10. BENZBROMARONE [Concomitant]
  11. KALINOR [Concomitant]
  12. RIFUN [Concomitant]
  13. NEUROTRAT [Concomitant]
  14. L-THYROXINE [Concomitant]
  15. FERRO ^SANOL^ [Concomitant]

REACTIONS (7)
  - BLOOD CREATININE INCREASED [None]
  - CATARACT [None]
  - DIPLOPIA [None]
  - EYE DISORDER [None]
  - RENAL IMPAIRMENT [None]
  - VISION BLURRED [None]
  - VISUAL ACUITY REDUCED [None]
